FAERS Safety Report 6188820-7 (Version None)
Quarter: 2009Q2

REPORT INFORMATION
  Report Type: 
  Country: None (occurrence: None)
  Receive Date: 20090511
  Receipt Date: 20090511
  Transmission Date: 20091009
  Serious: Yes (Death, Life-Threatening, Hospitalization)
  Sender: FDA-Public Use
  Company Number: None

PATIENT
  Age: 24 Year
  Sex: Male
  Weight: 58.9676 kg

DRUGS (1)
  1. REMICADE [Suspect]
     Indication: COLITIS ULCERATIVE
     Dosage: IV   ONE TIME DOSE
     Route: 042
     Dates: start: 20011219, end: 20011219

REACTIONS (7)
  - CEREBRAL DISORDER [None]
  - ECONOMIC PROBLEM [None]
  - HAEMORRHAGE [None]
  - INTRACARDIAC THROMBUS [None]
  - LYMPHOMA [None]
  - PULMONARY VALVE DISEASE [None]
  - SUBDURAL EFFUSION [None]
